FAERS Safety Report 8018212-7 (Version None)
Quarter: 2012Q1

REPORT INFORMATION
  Report Type: 
  Country: None (occurrence: None)
  Receive Date: 20120103
  Receipt Date: 20111227
  Transmission Date: 20120608
  Serious: Yes (Other)
  Sender: FDA-Public Use
  Company Number: JP-BRISTOL-MYERS SQUIBB COMPANY-16313314

PATIENT
  Age: 67 Year
  Sex: Male

DRUGS (7)
  1. METFORMIN HCL [Suspect]
     Indication: TYPE 2 DIABETES MELLITUS
     Dosage: 750MG:19JUL11-23AUG11(36DYS) 500MG:4OCT11-7NOV11(35DYS) 750MG:7NOV-2011-UNK 1000MG:STOPPED
     Route: 048
     Dates: start: 20110719
  2. ASPIRIN [Concomitant]
     Indication: CEREBRAL INFARCTION
     Route: 048
  3. INDAPAMIDE [Suspect]
     Indication: HYPERTENSION
     Route: 048
     Dates: start: 20100206, end: 20110719
  4. LIPITOR [Suspect]
     Indication: HYPERLIPIDAEMIA
     Dosage: 18NOV2008-23AUG11(1009DYS) 4OCT11-UNK
     Route: 048
     Dates: start: 20081118
  5. NORVASC [Concomitant]
     Indication: HYPERTENSION
     Route: 048
  6. CANDESARTAN CILEXETIL [Concomitant]
     Indication: HYPERTENSION
     Route: 048
     Dates: start: 20100215
  7. METFORMIN HCL [Concomitant]
     Indication: TYPE 2 DIABETES MELLITUS
     Dates: end: 20110719

REACTIONS (1)
  - RHABDOMYOLYSIS [None]
